FAERS Safety Report 13744979 (Version 1)
Quarter: 2017Q3

REPORT INFORMATION
  Report Type: Spontaneous
  Country: US (occurrence: US)
  Receive Date: 20170711
  Receipt Date: 20170711
  Transmission Date: 20171127
  Serious: No
  Sender: FDA-Public Use
  Company Number: None

PATIENT
  Age: 72 Year
  Sex: Male
  Weight: 80.1 kg

DRUGS (3)
  1. FISH OIL [Concomitant]
     Active Substance: FISH OIL
  2. VITAMIN B12 [Concomitant]
     Active Substance: CYANOCOBALAMIN
  3. LISINOPRIL. [Suspect]
     Active Substance: LISINOPRIL
     Indication: BLOOD PRESSURE MEASUREMENT
     Dosage: OTHER STRENGTH:MG;QUANTITY:1 TABLET(S);?
     Route: 048
     Dates: start: 20170110, end: 20170618

REACTIONS (8)
  - Somnolence [None]
  - Oropharyngeal pain [None]
  - Insomnia [None]
  - Pruritus [None]
  - Dizziness [None]
  - Asthenia [None]
  - Dysphonia [None]
  - Peripheral swelling [None]

NARRATIVE: CASE EVENT DATE: 20170609
